FAERS Safety Report 9344524 (Version 1)
Quarter: 2013Q2

REPORT INFORMATION
  Report Type: Spontaneous
  Country: ES (occurrence: ES)
  Receive Date: 20130612
  Receipt Date: 20130612
  Transmission Date: 20140414
  Serious: Yes (Hospitalization)
  Sender: FDA-Public Use
  Company Number: ES-ELI_LILLY_AND_COMPANY-ES201306001183

PATIENT
  Age: 87 Year
  Sex: Male

DRUGS (1)
  1. FORSTEO [Suspect]
     Indication: OSTEOPOROSIS
     Dosage: 20 UG, QD
     Route: 058
     Dates: start: 20130314, end: 20130530

REACTIONS (4)
  - Gastroenteritis [Unknown]
  - Bronchial disorder [Unknown]
  - Hypotonia [Unknown]
  - Asthenia [Unknown]
